FAERS Safety Report 7428360-8 (Version None)
Quarter: 2011Q2

REPORT INFORMATION
  Report Type: 
  Country: None (occurrence: None)
  Receive Date: 20110412
  Receipt Date: 20110329
  Transmission Date: 20111010
  Serious: Yes (Hospitalization)
  Sender: FDA-Public Use
  Company Number: 1000019951

PATIENT
  Age: 38 Year
  Sex: Male

DRUGS (4)
  1. VALPROIC ACID [Suspect]
     Dosage: (2500 MG,ONCE), ORAL
     Route: 048
     Dates: start: 20110318, end: 20110318
  2. PROMAZINE (PROMAZINE) (SOLUTION) [Suspect]
     Dosage: (20 ML,ONCE),ORAL
     Route: 048
     Dates: start: 20110318, end: 20110318
  3. ESOMEPRAZOLE (ESOMEPRAZOLE) (40 MILLIGRAM, TABLETS) [Suspect]
     Dosage: (80 MG,ONCE), ORAL
     Route: 048
     Dates: start: 20110318, end: 20110318
  4. ESCITALOPRAM [Suspect]
     Dosage: (40 MG,ONCE), ORAL
     Route: 048
     Dates: start: 20110318, end: 20110318

REACTIONS (5)
  - SOPOR [None]
  - MULTIPLE DRUG OVERDOSE INTENTIONAL [None]
  - SINUS TACHYCARDIA [None]
  - BLOOD PRESSURE DECREASED [None]
  - BLOOD CREATINE PHOSPHOKINASE INCREASED [None]
